FAERS Safety Report 14228193 (Version 3)
Quarter: 2018Q1

REPORT INFORMATION
  Report Type: Spontaneous
  Country: FR (occurrence: FR)
  Receive Date: 20171127
  Receipt Date: 20180220
  Transmission Date: 20180508
  Serious: Yes (Other)
  Sender: FDA-Public Use
  Company Number: FR-PFIZER INC-2017502500

PATIENT
  Age: 50 Year
  Sex: Female
  Weight: 63 kg

DRUGS (5)
  1. VINCRISTINE SULFATE. [Suspect]
     Active Substance: VINCRISTINE SULFATE
     Indication: NON-HODGKIN^S LYMPHOMA
     Dosage: 2 MG, 1X/DAY
     Route: 042
     Dates: start: 20171026, end: 20171027
  2. METHOTREXATE. [Suspect]
     Active Substance: METHOTREXATE
     Indication: NON-HODGKIN^S LYMPHOMA
     Dosage: 5800 MG, SINGLE
     Route: 042
     Dates: start: 20171026, end: 20171026
  3. MABTHERA [Suspect]
     Active Substance: RITUXIMAB
     Indication: NON-HODGKIN^S LYMPHOMA
     Dosage: 630 MG, SINGLE
     Route: 042
     Dates: start: 20171025, end: 20171025
  4. NATULAN [Suspect]
     Active Substance: PROCARBAZINE HYDROCHLORIDE
     Indication: NON-HODGKIN^S LYMPHOMA
     Dosage: 150 - 200 MG, ALTERNATE DAY
     Route: 048
     Dates: start: 20171026, end: 20171031
  5. LEVOFOLINATE CALCIUM ZENTIVA [Suspect]
     Active Substance: LEVOLEUCOVORIN CALCIUM
     Indication: NON-HODGKIN^S LYMPHOMA
     Dosage: 25 MG, DAILY
     Route: 042
     Dates: start: 20171027, end: 20171027

REACTIONS (4)
  - Hepatocellular injury [Recovering/Resolving]
  - Epstein-Barr virus infection [Recovering/Resolving]
  - Hepatitis A virus test positive [Unknown]
  - Choledochal cyst [Unknown]

NARRATIVE: CASE EVENT DATE: 20171031
